FAERS Safety Report 9736145 (Version 2)
Quarter: 2014Q1

REPORT INFORMATION
  Report Type: Spontaneous
  Country: US (occurrence: US)
  Receive Date: 20131206
  Receipt Date: 20140103
  Transmission Date: 20141002
  Serious: No
  Sender: FDA-Public Use
  Company Number: US-009507513-1312USA003302

PATIENT
  Sex: Female
  Weight: 77.98 kg

DRUGS (2)
  1. OXYTROL FOR WOMEN [Suspect]
     Indication: INCONTINENCE
     Dosage: 1 DF, ONCE
     Route: 062
  2. LABETALOL HYDROCHLORIDE [Concomitant]
     Indication: HYPERTENSION
     Dosage: 100 MG, QD

REACTIONS (3)
  - Rash [Recovered/Resolved]
  - Pruritus [Recovered/Resolved]
  - Erythema [Recovered/Resolved]
